FAERS Safety Report 7020634-8 (Version None)
Quarter: 2010Q3

REPORT INFORMATION
  Report Type: 
  Country: None (occurrence: None)
  Receive Date: 20100929
  Receipt Date: 20100927
  Transmission Date: 20110219
  Serious: Yes (Life-Threatening)
  Sender: FDA-Public Use
  Company Number: B0675529A

PATIENT
  Sex: Male

DRUGS (1)
  1. CEFTAZIDIME [Suspect]
     Indication: PRODUCT USED FOR UNKNOWN INDICATION
     Route: 065

REACTIONS (5)
  - BLUNTED AFFECT [None]
  - HOT FLUSH [None]
  - HYPERHIDROSIS [None]
  - HYPOACUSIS [None]
  - LIMB DISCOMFORT [None]
